FAERS Safety Report 7360544-X (Version None)
Quarter: 2011Q1

REPORT INFORMATION
  Report Type: 
  Country: None (occurrence: None)
  Receive Date: 20110310
  Receipt Date: 20110228
  Transmission Date: 20110831
  Serious: Yes (Other)
  Sender: FDA-Public Use
  Company Number: PHNU2005DE03421

PATIENT
  Sex: Male

DRUGS (2)
  1. VISUDYNE [Suspect]
     Indication: MACULAR DEGENERATION
     Dosage: 15 ML DAILY IV
     Route: 042
     Dates: start: 20050720, end: 20050720
  2. TRIAMCINOLONE [Suspect]
     Indication: MACULAR DEGENERATION
     Dates: start: 20050721, end: 20050721

REACTIONS (3)
  - DISEASE PROGRESSION [None]
  - RETINAL PIGMENT EPITHELIAL TEAR [None]
  - MACULAR DEGENERATION [None]
